FAERS Safety Report 21379158 (Version 7)
Quarter: 2023Q4

REPORT INFORMATION
  Report Type: Report from Study
  Country: US (occurrence: US)
  Receive Date: 20220927
  Receipt Date: 20231208
  Transmission Date: 20240110
  Serious: Yes (Hospitalization, Other)
  Sender: FDA-Public Use
  Company Number: US-ARGENX-2022-ARGX-US001907

PATIENT

DRUGS (1)
  1. VYVGART [Suspect]
     Active Substance: EFGARTIGIMOD ALFA-FCAB
     Indication: Myasthenia gravis
     Dosage: UNK
     Route: 042
     Dates: start: 20220915

REACTIONS (11)
  - Atrial fibrillation [Unknown]
  - Hospitalisation [Recovered/Resolved]
  - Cardiac failure congestive [Unknown]
  - Skin cancer [Unknown]
  - Urinary tract infection [Unknown]
  - Malaise [Unknown]
  - Product dose omission issue [Unknown]
  - Dehydration [Unknown]
  - Decreased appetite [Unknown]
  - Myasthenia gravis [Unknown]
  - Muscular weakness [Unknown]

NARRATIVE: CASE EVENT DATE: 20220921
